FAERS Safety Report 15543607 (Version 1)
Quarter: 2018Q4

REPORT INFORMATION
  Report Type: Spontaneous
  Country: US (occurrence: US)
  Receive Date: 20181023
  Receipt Date: 20181023
  Transmission Date: 20190205
  Serious: No
  Sender: FDA-Public Use
  Company Number: US-BAUSCH-BL-2018-013034

PATIENT
  Sex: Female
  Weight: 56.75 kg

DRUGS (5)
  1. ESTROGEN PELLETING [Concomitant]
     Indication: PRODUCT USED FOR UNKNOWN INDICATION
     Dosage: AS NEEDED
     Route: 058
     Dates: start: 201710
  2. ESTROGEN PELLETING [Concomitant]
     Dosage: 1 AS NEEDED
     Route: 023
     Dates: start: 201710
  3. NATURE-THROID [Concomitant]
     Active Substance: THYROID, PORCINE
     Indication: PRODUCT USED FOR UNKNOWN INDICATION
     Route: 048
     Dates: start: 2008
  4. VITAMINS (GENERAL NOT SPECIFIED) [Concomitant]
     Indication: PRODUCT USED FOR UNKNOWN INDICATION
     Route: 048
  5. WELLBUTRIN XL [Suspect]
     Active Substance: BUPROPION HYDROCHLORIDE
     Indication: NEUROTRANSMITTER LEVEL ALTERED
     Dosage: EVERY MORNING
     Route: 048
     Dates: start: 201803, end: 201804

REACTIONS (3)
  - Acne cystic [Recovering/Resolving]
  - Off label use [Recovered/Resolved]
  - Acne pustular [Recovering/Resolving]

NARRATIVE: CASE EVENT DATE: 2018
